FAERS Safety Report 16016846 (Version 3)
Quarter: 2019Q3

REPORT INFORMATION
  Report Type: Spontaneous
  Country: US (occurrence: US)
  Receive Date: 20190228
  Receipt Date: 20190703
  Transmission Date: 20191004
  Serious: Yes (Hospitalization)
  Sender: FDA-Public Use
  Company Number: US-PFIZER INC-2019073124

PATIENT
  Age: 68 Year
  Sex: Female
  Weight: 54.42 kg

DRUGS (3)
  1. LETROZOLE. [Concomitant]
     Active Substance: LETROZOLE
     Dosage: 2.5 MG, UNK
     Dates: start: 201809, end: 201903
  2. IBRANCE [Suspect]
     Active Substance: PALBOCICLIB
     Indication: BREAST CANCER
     Dosage: 125 MG, CYCLIC (21 DAYS)
     Route: 048
     Dates: start: 201809, end: 20190303
  3. DOXYCYCLINE. [Concomitant]
     Active Substance: DOXYCYCLINE
     Dosage: UNK
     Dates: start: 201802

REACTIONS (6)
  - Secretion discharge [Not Recovered/Not Resolved]
  - Full blood count decreased [Unknown]
  - Malaise [Unknown]
  - Cough [Recovering/Resolving]
  - Sinusitis [Recovering/Resolving]
  - Neoplasm progression [Unknown]

NARRATIVE: CASE EVENT DATE: 201809
